FAERS Safety Report 6805410-0 (Version None)
Quarter: 2010Q2

REPORT INFORMATION
  Report Type: 
  Country: None (occurrence: None)
  Receive Date: 20100628
  Receipt Date: 20071119
  Transmission Date: 20101027
  Serious: No
  Sender: FDA-Public Use
  Company Number: US-PFIZER INC-2007098298

PATIENT
  Sex: Male
  Weight: 85.28 kg

DRUGS (4)
  1. GEODON [Suspect]
     Dates: start: 20071101
  2. RISPERDAL [Concomitant]
  3. WARFARIN SODIUM [Concomitant]
     Indication: THROMBOSIS
  4. KLONOPIN [Concomitant]

REACTIONS (1)
  - ARTHRALGIA [None]
